FAERS Safety Report 9076001 (Version 1)
Quarter: 2013Q1

REPORT INFORMATION
  Report Type: Spontaneous
  Country: US (occurrence: US)
  Receive Date: 20130129
  Receipt Date: 20130129
  Transmission Date: 20140127
  Serious: Yes (Other)
  Sender: FDA-Public Use
  Company Number: US-ALLERGAN-1301190US

PATIENT
  Age: 53 Year
  Sex: Female

DRUGS (4)
  1. BOTOX? [Suspect]
     Indication: TORTICOLLIS
     Dosage: 150 UNITS, SINGLE
     Route: 030
     Dates: start: 201207, end: 201207
  2. BOTOX? [Suspect]
     Dosage: UNK, SINGLE
     Route: 030
     Dates: start: 2008, end: 2008
  3. KLONOPIN [Concomitant]
     Indication: PAIN
     Dosage: 0.5 MG, UNK
     Route: 048
     Dates: start: 2011
  4. TYLENOL /00020001/ [Concomitant]
     Indication: PAIN
     Dosage: UNK UNK, PRN
     Route: 048

REACTIONS (2)
  - Choking [Recovered/Resolved]
  - Therapeutic response decreased [Unknown]
